FAERS Safety Report 17999319 (Version 10)
Quarter: 2021Q3

REPORT INFORMATION
  Report Type: Spontaneous
  Country: GB (occurrence: GB)
  Receive Date: 20200709
  Receipt Date: 20210922
  Transmission Date: 20211014
  Serious: Yes (Hospitalization, Other)
  Sender: FDA-Public Use
  Company Number: NVSC2020GB187313

PATIENT
  Age: 40 Year
  Sex: Female

DRUGS (15)
  1. TRASTUZUMAB. [Suspect]
     Active Substance: TRASTUZUMAB
     Indication: BREAST CANCER METASTATIC
     Dosage: 651 MG, Q3W (651 MG, 1X/DAY, LOADING DOSEPLANNED NUMBER OF CYCLES COMPLETED)
     Route: 041
     Dates: start: 20160323, end: 20160323
  2. PERTUZUMAB. [Suspect]
     Active Substance: PERTUZUMAB
     Indication: BREAST CANCER METASTATIC
     Dosage: 840 MG, QD
     Route: 042
     Dates: start: 20160324, end: 20160324
  3. DENOSUMAB [Concomitant]
     Active Substance: DENOSUMAB
     Indication: BREAST CANCER METASTATIC
     Dosage: 120 MG
     Route: 065
  4. DOCETAXEL. [Suspect]
     Active Substance: DOCETAXEL
     Indication: BREAST CANCER METASTATIC
     Dosage: 140 MG, CYCLIC (ONCE IN 2 WEEKS)
     Route: 042
     Dates: start: 20160324, end: 20160526
  5. DALTEPARIN [Concomitant]
     Active Substance: DALTEPARIN
     Indication: THROMBOSIS PROPHYLAXIS
     Dosage: 5000 IU, QD (5000 IU, 1X/DAY)
     Route: 058
     Dates: start: 20160802, end: 20160809
  6. DOCETAXEL. [Suspect]
     Active Substance: DOCETAXEL
     Dosage: 110 MG, CYCLIC (EVERY 2 WEEKS)
     Route: 042
     Dates: start: 20160526, end: 20160707
  7. CITALOPRAM [Concomitant]
     Active Substance: CITALOPRAM HYDROBROMIDE
     Indication: THROMBOSIS PROPHYLAXIS
     Dosage: 20 MG, QD (20 MG, 1X/DAY)
     Route: 048
     Dates: start: 201003
  8. OMEPRAZOLE. [Concomitant]
     Active Substance: OMEPRAZOLE
     Indication: DYSPEPSIA
     Dosage: 20 MG, 1X/DAY
     Route: 048
     Dates: start: 20170727
  9. DENOSUMAB [Concomitant]
     Active Substance: DENOSUMAB
     Indication: METASTASES TO BONE
     Dosage: 120 MG, QMO (120 MG Q28D)
     Route: 058
     Dates: start: 20160323
  10. PARACETAMOL [Concomitant]
     Active Substance: ACETAMINOPHEN
     Indication: PRODUCT USED FOR UNKNOWN INDICATION
     Dosage: UNK
     Route: 065
  11. DEXAMETHASONE. [Concomitant]
     Active Substance: DEXAMETHASONE
     Indication: BREAST CANCER METASTATIC
     Dosage: 6 MG, TIW
     Route: 042
     Dates: start: 20191113
  12. TAMOXIFEN [Suspect]
     Active Substance: TAMOXIFEN
     Indication: BREAST CANCER METASTATIC
     Dosage: UNK, 1X/DAY
     Route: 048
     Dates: start: 201603
  13. TRASTUZUMAB. [Suspect]
     Active Substance: TRASTUZUMAB
     Dosage: 483 MG, CYCLIC (420 MG EVERY 3 WEEKS)
     Route: 042
     Dates: start: 20160413
  14. DEXAMETHASONE. [Concomitant]
     Active Substance: DEXAMETHASONE
     Indication: METASTASES TO BONE
     Dosage: 20 MG, TIW
     Route: 042
     Dates: start: 20160324
  15. PERTUZUMAB. [Suspect]
     Active Substance: PERTUZUMAB
     Dosage: 420 MG, TIW
     Route: 042
     Dates: start: 20160413

REACTIONS (8)
  - Joint stiffness [Recovered/Resolved]
  - Diarrhoea [Not Recovered/Not Resolved]
  - Musculoskeletal stiffness [Recovered/Resolved]
  - Fatigue [Recovered/Resolved]
  - Influenza like illness [Recovered/Resolved]
  - Atrophic vulvovaginitis [Recovered/Resolved]
  - Infection [Recovered/Resolved]
  - Atrial thrombosis [Recovered/Resolved]

NARRATIVE: CASE EVENT DATE: 20160324
